FAERS Safety Report 8137609-8 (Version None)
Quarter: 2012Q1

REPORT INFORMATION
  Report Type: 
  Country: None (occurrence: None)
  Receive Date: 20120103
  Receipt Date: 20111010
  Transmission Date: 20120608
  Serious: No
  Sender: FDA-Public Use
  Company Number: AE-2011-001362

PATIENT
  Age: 53 Year
  Sex: Male

DRUGS (7)
  1. HYDROCHLOROTHIAZIDE [Concomitant]
  2. AMBIEN (ZOLPIEM TARTRATE) [Concomitant]
  3. CELEXA [Concomitant]
  4. ATENOLOL [Concomitant]
  5. INCIVEK [Suspect]
     Dosage: 2250 MG (750 MG, 2 PO TID), ORAL
     Route: 048
     Dates: start: 20110903
  6. RIBAVIRIN [Concomitant]
  7. PEGASYS [Concomitant]

REACTIONS (4)
  - HOT FLUSH [None]
  - VERTIGO [None]
  - CHILLS [None]
  - PARANOIA [None]
